FAERS Safety Report 20525580 (Version 10)
Quarter: 2022Q2

REPORT INFORMATION
  Report Type: Report from Study
  Country: US (occurrence: US)
  Receive Date: 20220228
  Receipt Date: 20220627
  Transmission Date: 20220721
  Serious: Yes (Other)
  Sender: FDA-Public Use
  Company Number: US-BIOVITRUM-2022US02681

PATIENT
  Sex: Female

DRUGS (4)
  1. DOPTELET [Suspect]
     Active Substance: AVATROMBOPAG MALEATE
     Indication: Thrombocytopenia
     Route: 048
     Dates: start: 20220211
  2. DOPTELET [Suspect]
     Active Substance: AVATROMBOPAG MALEATE
     Dosage: 40MG MONDAY, WEDNESDAY, FRIDAY; 20MG OTHER DAYS OF THE WEEK
     Route: 048
     Dates: start: 20220211
  3. DOPTELET [Suspect]
     Active Substance: AVATROMBOPAG MALEATE
     Route: 048
     Dates: start: 202110
  4. DOPTELET [Suspect]
     Active Substance: AVATROMBOPAG MALEATE
     Route: 048
     Dates: start: 20220211

REACTIONS (25)
  - Glaucoma [Unknown]
  - Breast cancer [Unknown]
  - Cataract [Unknown]
  - Energy increased [Unknown]
  - Seasonal allergy [Unknown]
  - Contusion [Unknown]
  - Skin atrophy [Unknown]
  - Hypersomnia [Unknown]
  - Fibromyalgia [Unknown]
  - Platelet count abnormal [Unknown]
  - Fatigue [Unknown]
  - Muscle spasms [Recovered/Resolved]
  - Myalgia [Unknown]
  - Abdominal discomfort [Unknown]
  - Platelet count increased [Unknown]
  - Pain in extremity [Recovering/Resolving]
  - Vision blurred [Unknown]
  - Diarrhoea [Unknown]
  - Fatigue [Unknown]
  - Sleep disorder [Unknown]
  - Platelet count decreased [Unknown]
  - Asthenia [Unknown]
  - Crying [Unknown]
  - Headache [Unknown]
  - Product dose omission issue [Unknown]
